FAERS Safety Report 21581658 (Version 2)
Quarter: 2022Q4

REPORT INFORMATION
  Report Type: Report from Study
  Country: US (occurrence: US)
  Receive Date: 20221111
  Receipt Date: 20221114
  Transmission Date: 20230113
  Serious: No
  Sender: FDA-Public Use
  Company Number: US-ABBVIE-4140119

PATIENT
  Sex: Male

DRUGS (4)
  1. HUMIRA [Suspect]
     Active Substance: ADALIMUMAB
     Indication: Colitis ulcerative
     Dosage: STRENGTH: 40MG/ML CITRATE FEE
     Route: 058
  2. HUMIRA [Suspect]
     Active Substance: ADALIMUMAB
     Indication: Rheumatoid arthritis
     Route: 058
  3. MODERNA COVID-19 VACCINE [Concomitant]
     Active Substance: ELASOMERAN
     Indication: COVID-19 immunisation
     Dosage: 1ST DOSE?FREQUENCY:ONCE
     Route: 030
     Dates: start: 20210322, end: 20210322
  4. MODERNA COVID-19 VACCINE [Concomitant]
     Active Substance: ELASOMERAN
     Indication: COVID-19 immunisation
     Dosage: FREQUENCY: ONCE
     Route: 030
     Dates: start: 20210422, end: 20210422

REACTIONS (14)
  - Balanoposthitis [Unknown]
  - Ankylosing spondylitis [Recovering/Resolving]
  - Dizziness [Not Recovered/Not Resolved]
  - Rash pruritic [Not Recovered/Not Resolved]
  - Anal pruritus [Not Recovered/Not Resolved]
  - Rash [Not Recovered/Not Resolved]
  - Rash erythematous [Not Recovered/Not Resolved]
  - Balance disorder [Not Recovered/Not Resolved]
  - Rash macular [Unknown]
  - Penile discomfort [Unknown]
  - Dermatitis contact [Recovering/Resolving]
  - Penile swelling [Unknown]
  - Dermatitis infected [Recovering/Resolving]
  - Pustule [Unknown]

NARRATIVE: CASE EVENT DATE: 20220101
